FAERS Safety Report 22133236 (Version 1)
Quarter: 2023Q1

REPORT INFORMATION
  Report Type: Spontaneous
  Country: US (occurrence: US)
  Receive Date: 20230324
  Receipt Date: 20230324
  Transmission Date: 20230418
  Serious: Yes (Other)
  Sender: FDA-Public Use
  Company Number: US-CBL-001759

PATIENT
  Age: 4 Year
  Sex: Female

DRUGS (2)
  1. TACROLIMUS [Suspect]
     Active Substance: TACROLIMUS
     Indication: Prophylaxis against graft versus host disease
     Route: 065
  2. MYCOPHENOLATE MOFETIL [Suspect]
     Active Substance: MYCOPHENOLATE MOFETIL
     Indication: Prophylaxis against graft versus host disease
     Route: 065

REACTIONS (12)
  - Gastroenteritis [Unknown]
  - Thrombocytopenia [Unknown]
  - Engraftment syndrome [Unknown]
  - Hypervolaemia [Unknown]
  - Hypertension [Unknown]
  - Hypertransaminasaemia [Unknown]
  - Hypogammaglobulinaemia [Unknown]
  - Cytomegalovirus infection reactivation [Unknown]
  - Cardiac dysfunction [Recovered/Resolved]
  - Acquired left ventricle outflow tract obstruction [Recovered/Resolved]
  - Product use in unapproved indication [Unknown]
  - Mucosal inflammation [Unknown]
